FAERS Safety Report 7406260-7 (Version None)
Quarter: 2011Q2

REPORT INFORMATION
  Report Type: 
  Country: None (occurrence: None)
  Receive Date: 20110411
  Receipt Date: 20110404
  Transmission Date: 20111010
  Serious: Yes (Hospitalization)
  Sender: FDA-Public Use
  Company Number: US-US-EMD SERONO, INC.-7047850

PATIENT
  Sex: Male

DRUGS (5)
  1. REBIF [Suspect]
     Indication: MULTIPLE SCLEROSIS
     Route: 058
     Dates: start: 20091214, end: 20110301
  2. NON-STEROIDAL ANTI-INFLAMMATORY DRUGS [Suspect]
     Indication: PRODUCT USED FOR UNKNOWN INDICATION
  3. ADVIL LIQUI-GELS [Concomitant]
     Indication: MUSCULOSKELETAL PAIN
  4. ASPIRIN [Concomitant]
     Indication: MUSCULOSKELETAL PAIN
  5. REBIF [Suspect]
     Dates: start: 20110404

REACTIONS (2)
  - INTESTINAL ULCER PERFORATION [None]
  - DIARRHOEA [None]
